FAERS Safety Report 7842565 (Version 5)
Quarter: 2013Q4

REPORT INFORMATION
  Report Type: Spontaneous
  Country: US (occurrence: US)
  Receive Date: 20110306
  Receipt Date: 20131227
  Transmission Date: 20140711
  Serious: Yes (Hospitalization, Other)
  Sender: FDA-Public Use
  Company Number: US-B.I. PHARMACEUTICALS,INC./RIDGEFIELD-2011-BP-03593BP

PATIENT
  Sex: Female
  Weight: 67.13 kg

DRUGS (14)
  1. PRADAXA [Suspect]
     Indication: ATRIAL FIBRILLATION
     Dosage: 300 MG
     Dates: start: 20101207, end: 20110309
  2. DIOVAN [Concomitant]
     Dosage: 320 MG
  3. TORSEMIDE [Concomitant]
  4. SYNTHROID [Concomitant]
     Dosage: 0.05 MG
  5. NEURONTIN [Concomitant]
     Dosage: 300 MG
  6. ASPIRIN [Concomitant]
     Dosage: 34.7143 MG
  7. ALDACTONE [Concomitant]
  8. NORVASC [Concomitant]
     Dosage: 2.5 MG
  9. LANOXIN [Concomitant]
     Dosage: 62.5 MG
  10. LASIX [Concomitant]
     Dosage: 40 MG
  11. VITAMIN D [Concomitant]
     Dosage: 2000 U
  12. ZANTAC [Concomitant]
  13. ATIVAN [Concomitant]
  14. NITROGLYCERIN [Concomitant]

REACTIONS (11)
  - Lower gastrointestinal haemorrhage [Recovered/Resolved]
  - Coagulopathy [Unknown]
  - Asthenia [Unknown]
  - Apparent death [Unknown]
  - Local swelling [Unknown]
  - Aphagia [Unknown]
  - Weight decreased [Unknown]
  - Gait disturbance [Not Recovered/Not Resolved]
  - Pain [Not Recovered/Not Resolved]
  - Injury [Unknown]
  - Pain [Unknown]
